FAERS Safety Report 9255288 (Version 3)
Quarter: 2013Q3

REPORT INFORMATION
  Report Type: Spontaneous
  Country: US (occurrence: US)
  Receive Date: 20130425
  Receipt Date: 20130708
  Transmission Date: 20140515
  Serious: No
  Sender: FDA-Public Use
  Company Number: US-009507513-1304USA009028

PATIENT
  Age: 68 Year
  Sex: Female
  Weight: 59.86 kg

DRUGS (3)
  1. CLARITIN [Suspect]
     Indication: DISCOMFORT
     Dosage: 10 MG, QD
     Route: 048
     Dates: start: 20130326, end: 20130403
  2. CLARITIN [Suspect]
     Indication: HYPERSENSITIVITY
  3. CLARITIN [Suspect]
     Indication: MEDICAL OBSERVATION

REACTIONS (1)
  - Drug ineffective [Unknown]
